FAERS Safety Report 17421347 (Version 1)
Quarter: 2020Q1

REPORT INFORMATION
  Report Type: Spontaneous
  Country: US (occurrence: US)
  Receive Date: 20200214
  Receipt Date: 20200214
  Transmission Date: 20200409
  Serious: Yes (Other)
  Sender: FDA-Public Use
  Company Number: US-BAYER-2020-025137

PATIENT
  Age: 16 Year
  Sex: Female

DRUGS (1)
  1. ASPIRIN (PAIN AND FEVER) [Suspect]
     Active Substance: ASPIRIN
     Indication: PAIN
     Dosage: 2 DF, Q4HR
     Route: 048

REACTIONS (3)
  - Periorbital swelling [Unknown]
  - Angioedema [Unknown]
  - Lip swelling [Unknown]
